FAERS Safety Report 4314903-X (Version None)
Quarter: 2004Q1

REPORT INFORMATION
  Report Type: 
  Country: None (occurrence: None)
  Receive Date: 20040310
  Receipt Date: 20040310
  Transmission Date: 20041129
  Serious: Yes (Congenital Anomaly)
  Sender: FDA-Public Use
  Company Number: None

PATIENT
  Sex: Male
  Weight: 3 kg

DRUGS (2)
  1. CLARITIN [Suspect]
     Indication: MULTIPLE ALLERGIES
     Dosage: 1 TABLET ONCE A DAY
     Dates: start: 19930801, end: 20020401
  2. SYNTHROID [Suspect]
     Indication: HYPOTHYROIDISM
     Dosage: 1 TABLET ONCE A DAY
     Dates: start: 19971101, end: 20040309

REACTIONS (3)
  - CONGENITAL GENITOURINARY ABNORMALITY [None]
  - HYPOSPADIAS [None]
  - MATERNAL DRUGS AFFECTING FOETUS [None]
